FAERS Safety Report 5202339-9 (Version None)
Quarter: 2006Q4

REPORT INFORMATION
  Report Type: 
  Country: None (occurrence: None)
  Receive Date: 20061012
  Receipt Date: 20060824
  Transmission Date: 20070319
  Serious: Yes (Hospitalization)
  Sender: FDA-Public Use
  Company Number: 2006S1000165

PATIENT
  Age: 44 Year
  Sex: Male
  Weight: 65.5 kg

DRUGS (7)
  1. CUBICIN [Suspect]
     Indication: ENDOCARDITIS STAPHYLOCOCCAL
     Dosage: 6 MG/KG; Q24H; IV
     Route: 042
     Dates: start: 20060807, end: 20060824
  2. HYDRALAZINE HCL [Concomitant]
  3. PANTOPRAZOLE SODIUM [Concomitant]
  4. CLONIDINE [Concomitant]
  5. NIFEDIPINE [Concomitant]
  6. HYDROCHLOROTHIAZIDE [Concomitant]
  7. VANCOMYCIN [Concomitant]

REACTIONS (1)
  - STAPHYLOCOCCAL BACTERAEMIA [None]
